FAERS Safety Report 24019091 (Version 1)
Quarter: 2024Q2

REPORT INFORMATION
  Report Type: Spontaneous
  Country: US (occurrence: None)
  Receive Date: 20240626
  Receipt Date: 20240626
  Transmission Date: 20240716
  Serious: Yes (Hospitalization)
  Sender: FDA-Public Use
  Company Number: None

PATIENT
  Age: 7 Year
  Sex: Female

DRUGS (3)
  1. MYCOPHENOLIC ACID [Suspect]
     Active Substance: MYCOPHENOLIC ACID
     Indication: Renal transplant
     Dosage: FREQUENCY : TWICE A DAY;?
     Route: 048
     Dates: start: 20210326
  2. TACROLIMUS [Concomitant]
     Active Substance: TACROLIMUS
  3. FLONASE CHILDREN [Concomitant]

REACTIONS (2)
  - Norovirus test positive [None]
  - Dehydration [None]

NARRATIVE: CASE EVENT DATE: 20240621
